FAERS Safety Report 12313835 (Version 3)
Quarter: 2016Q2

REPORT INFORMATION
  Report Type: Report from Study
  Country: PL (occurrence: PL)
  Receive Date: 20160428
  Receipt Date: 20160518
  Transmission Date: 20160815
  Serious: Yes (Death, Hospitalization, Other)
  Sender: FDA-Public Use
  Company Number: PHHY2015PL138122

PATIENT
  Age: 24 Year
  Sex: Male
  Weight: 65 kg

DRUGS (3)
  1. TASIGNA [Suspect]
     Active Substance: NILOTINIB
     Indication: PRODUCT USED FOR UNKNOWN INDICATION
     Dosage: 400 MG, BID
     Route: 048
     Dates: start: 20150915, end: 20151022
  2. TASIGNA [Suspect]
     Active Substance: NILOTINIB
     Dosage: 800 MG, UNK
     Route: 048
  3. TASIGNA [Suspect]
     Active Substance: NILOTINIB
     Dosage: 200 MG, QD
     Route: 048
     Dates: start: 20151028, end: 20160105

REACTIONS (10)
  - Aspartate aminotransferase increased [Unknown]
  - Blood bilirubin increased [Unknown]
  - Neutropenia [Unknown]
  - Pyrexia [Unknown]
  - Aphthous ulcer [Unknown]
  - Death [Fatal]
  - Leukopenia [Unknown]
  - Alanine aminotransferase increased [Unknown]
  - Pneumonia [Unknown]
  - Asthenia [Unknown]

NARRATIVE: CASE EVENT DATE: 20151022
